FAERS Safety Report 11558245 (Version 1)
Quarter: 2015Q3

REPORT INFORMATION
  Report Type: Spontaneous
  Country: US (occurrence: None)
  Receive Date: 20150925
  Receipt Date: 20150925
  Transmission Date: 20151125
  Serious: Yes (Hospitalization)
  Sender: FDA-Public Use
  Company Number: None

PATIENT
  Age: 35 Year
  Sex: Female
  Weight: 46.72 kg

DRUGS (2)
  1. PRENATAL  VITAMIN [Concomitant]
     Active Substance: VITAMINS
  2. ARTICAINE [Suspect]
     Active Substance: ARTICAINE

REACTIONS (4)
  - Dyspnoea [None]
  - Hypoaesthesia [None]
  - Musculoskeletal stiffness [None]
  - Chest discomfort [None]

NARRATIVE: CASE EVENT DATE: 20150824
